FAERS Safety Report 13774935 (Version 1)
Quarter: 2017Q3

REPORT INFORMATION
  Report Type: Spontaneous
  Country: US (occurrence: US)
  Receive Date: 20170720
  Receipt Date: 20170720
  Transmission Date: 20171127
  Serious: No
  Sender: FDA-Public Use
  Company Number: None

PATIENT
  Sex: Female

DRUGS (1)
  1. GILENYA [Suspect]
     Active Substance: FINGOLIMOD HYDROCHLORIDE
     Indication: MULTIPLE SCLEROSIS
     Route: 048
     Dates: start: 20170619

REACTIONS (6)
  - Diarrhoea [None]
  - Product quality issue [None]
  - Oropharyngeal pain [None]
  - White blood cell count decreased [None]
  - Hepatic enzyme increased [None]
  - Pyrexia [None]
